FAERS Safety Report 9892664 (Version 2)
Quarter: 2014Q1

REPORT INFORMATION
  Report Type: Spontaneous
  Country: US (occurrence: US)
  Receive Date: 20140212
  Receipt Date: 20140212
  Transmission Date: 20141002
  Serious: Yes (Death, Hospitalization)
  Sender: FDA-Public Use
  Company Number: US-EXELIXIS-CABO-14003931

PATIENT
  Sex: Male
  Weight: 90.7 kg

DRUGS (11)
  1. COMETRIQ [Suspect]
     Indication: THYROID CANCER
     Dosage: 40 MG, QD
     Route: 048
     Dates: start: 20130328
  2. COMETRIQ [Suspect]
     Dosage: 20 MG, QD
     Route: 048
     Dates: start: 20130828
  3. CALCITRIOL [Concomitant]
  4. TERAZOSIN [Concomitant]
  5. SYNTHROID [Concomitant]
  6. VITAMIN D [Concomitant]
  7. HYDROCHLOROTHIAZIDE [Concomitant]
  8. UROCIT-K [Concomitant]
  9. CALCIUM [Concomitant]
  10. CIPRO [Concomitant]
  11. TRAMADOL [Concomitant]

REACTIONS (3)
  - Blood bilirubin increased [Unknown]
  - Death [Fatal]
  - Off label use [Unknown]
